FAERS Safety Report 10622181 (Version 1)
Quarter: 2014Q4

REPORT INFORMATION
  Report Type: Spontaneous
  Country: US (occurrence: None)
  Receive Date: 20141201
  Receipt Date: 20141201
  Transmission Date: 20150529
  Serious: Yes (Hospitalization)
  Sender: FDA-Public Use
  Company Number: None

PATIENT
  Age: 62 Year
  Sex: Male
  Weight: 101.4 kg

DRUGS (1)
  1. CAPECITABINE. [Suspect]
     Active Substance: CAPECITABINE
     Indication: GASTRIC CANCER
     Route: 048
     Dates: start: 20141028

REACTIONS (5)
  - Proctalgia [None]
  - Diarrhoea [None]
  - Abdominal distension [None]
  - Faecal incontinence [None]
  - Constipation [None]

NARRATIVE: CASE EVENT DATE: 20140523
